FAERS Safety Report 7595045-7 (Version None)
Quarter: 2011Q3

REPORT INFORMATION
  Report Type: 
  Country: None (occurrence: None)
  Receive Date: 20110707
  Receipt Date: 20110621
  Transmission Date: 20111222
  Serious: No
  Sender: FDA-Public Use
  Company Number: US-B.I. PHARMACEUTICALS,INC./RIDGEFIELD-2011-BP-15978BP

PATIENT
  Sex: Male

DRUGS (6)
  1. SIMVASTATIN [Concomitant]
  2. PRADAXA [Suspect]
     Indication: ATRIAL FIBRILLATION
     Dosage: 300 MG
     Route: 048
  3. COREG [Concomitant]
     Indication: ATRIAL FIBRILLATION
  4. BYETTA [Concomitant]
     Indication: DIABETES MELLITUS
  5. METFORMIN HCL [Concomitant]
     Indication: DIABETES MELLITUS
  6. LISINOPRIL [Concomitant]
     Indication: ATRIAL FIBRILLATION

REACTIONS (2)
  - ABDOMINAL DISCOMFORT [None]
  - SENSATION OF FOREIGN BODY [None]
